FAERS Safety Report 18326608 (Version 2)
Quarter: 2020Q4

REPORT INFORMATION
  Report Type: Spontaneous
  Country: US (occurrence: US)
  Receive Date: 20200929
  Receipt Date: 20201102
  Transmission Date: 20210113
  Serious: Yes (Death, Other)
  Sender: FDA-Public Use
  Company Number: NVSC2020US262640

PATIENT

DRUGS (1)
  1. COSENTYX [Suspect]
     Active Substance: SECUKINUMAB
     Indication: PRODUCT USED FOR UNKNOWN INDICATION
     Dosage: 300 MG, QMO (BENEATH THE SKIN,USUALLY VIA INJECTION)
     Route: 058

REACTIONS (3)
  - Mesenteric neoplasm [Fatal]
  - B-cell lymphoma [Fatal]
  - Metastatic lymphoma [Fatal]
